FAERS Safety Report 22540110 (Version 2)
Quarter: 2023Q2

REPORT INFORMATION
  Report Type: Report from Study
  Country: US (occurrence: US)
  Receive Date: 20230609
  Receipt Date: 20230612
  Transmission Date: 20230721
  Serious: No
  Sender: FDA-Public Use
  Company Number: US-002147023-NVSC2023US131537

PATIENT
  Sex: Male
  Weight: 102 kg

DRUGS (1)
  1. KYMRIAH [Suspect]
     Active Substance: TISAGENLECLEUCEL
     Indication: Acute lymphocytic leukaemia
     Dosage: 1.7E8 CAR-POSITIVE VIABLE T PASS - CELLS, ONCE/SINGLE
     Route: 042
     Dates: start: 20230508

REACTIONS (1)
  - Liver function test increased [Unknown]
